FAERS Safety Report 4378522-1 (Version None)
Quarter: 2004Q2

REPORT INFORMATION
  Report Type: 
  Country: None (occurrence: None)
  Receive Date: 20040609
  Receipt Date: 20040527
  Transmission Date: 20050107
  Serious: Yes (Other)
  Sender: FDA-Public Use
  Company Number: GB-JNJFOC-20040600022

PATIENT
  Age: 42 Year
  Sex: Female

DRUGS (2)
  1. DURAGESIC [Suspect]
     Indication: HERNIA PAIN
     Dosage: TRANSDERMAL
     Route: 062
     Dates: start: 20010101
  2. THYROXINE (LEVOTHYROXINE SODIUM) [Concomitant]

REACTIONS (2)
  - DRUG INEFFECTIVE [None]
  - EPILEPSY [None]
